FAERS Safety Report 19913530 (Version 1)
Quarter: 2021Q4

REPORT INFORMATION
  Report Type: Spontaneous
  Country: FR (occurrence: FR)
  Receive Date: 20211004
  Receipt Date: 20211004
  Transmission Date: 20220303
  Serious: Yes (Hospitalization, Other)
  Sender: FDA-Public Use
  Company Number: FR-BIOGARAN-B21000362

PATIENT
  Age: 82 Year
  Sex: Female

DRUGS (4)
  1. HYDROCORTISONE [Suspect]
     Active Substance: HYDROCORTISONE
     Indication: Pneumonitis
     Dosage: UNK
     Route: 065
     Dates: start: 2020
  2. GEFITINIB [Suspect]
     Active Substance: GEFITINIB
     Indication: Lung neoplasm malignant
     Dosage: UNK
     Route: 065
     Dates: start: 2020
  3. BETAMETHASONE [Suspect]
     Active Substance: BETAMETHASONE
     Indication: Pneumonitis
     Dosage: 6 MG, DOSE OF 6 MG
     Route: 065
     Dates: start: 2020
  4. BETAMETHASONE [Suspect]
     Active Substance: BETAMETHASONE
     Dosage: 1MG
     Route: 065
     Dates: start: 2020

REACTIONS (4)
  - Pneumocystis jirovecii pneumonia [Recovered/Resolved]
  - Drug ineffective for unapproved indication [Recovered/Resolved]
  - Intentional product use issue [Recovered/Resolved]
  - Off label use [Recovered/Resolved]

NARRATIVE: CASE EVENT DATE: 20200101
